FAERS Safety Report 4553867-0 (Version None)
Quarter: 2005Q1

REPORT INFORMATION
  Report Type: 
  Country: None (occurrence: None)
  Receive Date: 20050113
  Receipt Date: 20050113
  Transmission Date: 20050727
  Serious: Yes (Other)
  Sender: FDA-Public Use
  Company Number: None

PATIENT
  Age: 51 Year
  Sex: Female

DRUGS (1)
  1. SUBOXONE [Suspect]
     Indication: DRUG DETOXIFICATION
     Dosage: TAPER STARTING W/ 1 TAB QID
     Route: 060
     Dates: start: 20041207

REACTIONS (2)
  - RESPIRATION ABNORMAL [None]
  - RESPIRATORY RATE DECREASED [None]
